FAERS Safety Report 12871740 (Version 2)
Quarter: 2017Q4

REPORT INFORMATION
  Report Type: Spontaneous
  Country: US (occurrence: US)
  Receive Date: 20161021
  Receipt Date: 20171023
  Transmission Date: 20180320
  Serious: Yes (Death, Other)
  Sender: FDA-Public Use
  Company Number: US-PURDUE PHARMA-USA-2016-0131786

PATIENT
  Sex: Male

DRUGS (1)
  1. OXYCONTIN [Suspect]
     Active Substance: OXYCODONE HYDROCHLORIDE
     Indication: DRUG USE DISORDER
     Dosage: 2 TABLET, SINGLE
     Route: 048
     Dates: start: 1997

REACTIONS (2)
  - Overdose [Fatal]
  - Drug abuse [Unknown]

NARRATIVE: CASE EVENT DATE: 1997
